FAERS Safety Report 15414473 (Version 1)
Quarter: 2018Q3

REPORT INFORMATION
  Report Type: Spontaneous
  Country: CH (occurrence: CH)
  Receive Date: 20180921
  Receipt Date: 20180921
  Transmission Date: 20181010
  Serious: Yes (Hospitalization, Other)
  Sender: FDA-Public Use
  Company Number: CH-ELI_LILLY_AND_COMPANY-CH201809004603

PATIENT
  Age: 81 Year
  Sex: Female

DRUGS (1)
  1. FLUCTINE 20MG [Suspect]
     Active Substance: FLUOXETINE HYDROCHLORIDE
     Indication: DEPRESSION
     Dosage: UP TO 3X20MG/D
     Route: 065

REACTIONS (5)
  - Organising pneumonia [Unknown]
  - Spinal pain [Unknown]
  - Drug resistance [Unknown]
  - Back pain [Not Recovered/Not Resolved]
  - Condition aggravated [Unknown]
